FAERS Safety Report 5244687-2 (Version None)
Quarter: 2007Q1

REPORT INFORMATION
  Report Type: 
  Country: None (occurrence: None)
  Receive Date: 20070222
  Receipt Date: 20070215
  Transmission Date: 20070707
  Serious: Yes (Hospitalization)
  Sender: FDA-Public Use
  Company Number: JP-MERCK-0702USA03282

PATIENT
  Age: 64 Year
  Sex: Female

DRUGS (3)
  1. PRIMAXIN [Suspect]
     Indication: ULCER
     Route: 042
  2. PRIMAXIN [Suspect]
     Indication: SCLERAL DISORDER
     Route: 042
  3. ANTIMICROBIAL (UNSPECIFIED) [Concomitant]
     Indication: ULCER
     Route: 061

REACTIONS (7)
  - ABSCESS BACTERIAL [None]
  - CONJUNCTIVAL DISORDER [None]
  - DRUG RESISTANCE [None]
  - ENDOPHTHALMITIS [None]
  - NODULE [None]
  - PSEUDOMONAS INFECTION [None]
  - ULCERATIVE KERATITIS [None]
